FAERS Safety Report 17656646 (Version 6)
Quarter: 2021Q3

REPORT INFORMATION
  Report Type: Report from Study
  Country: KR (occurrence: KR)
  Receive Date: 20200410
  Receipt Date: 20210716
  Transmission Date: 20211014
  Serious: Yes (Hospitalization)
  Sender: FDA-Public Use
  Company Number: KR-OTSUKA-2020_009217

PATIENT
  Age: 28 Year
  Sex: Female

DRUGS (26)
  1. INVEGA [Suspect]
     Active Substance: PALIPERIDONE
     Dosage: 9 MG, BID
     Route: 048
     Dates: start: 20200418, end: 20200501
  2. RIVOTRIL [Concomitant]
     Active Substance: CLONAZEPAM
     Indication: INSOMNIA
     Dosage: 1 DF, QD (STRENGTH: 0.5 MG)
     Route: 048
     Dates: start: 20191031
  3. INVEGA [Suspect]
     Active Substance: PALIPERIDONE
     Dosage: 6 MG, QD
     Route: 048
     Dates: start: 20200309, end: 20200324
  4. SEROQUEL [Concomitant]
     Active Substance: QUETIAPINE FUMARATE
     Dosage: 100 MG, QD
     Route: 048
     Dates: start: 20200402, end: 20200405
  5. ARIPIPRAZOLE. [Suspect]
     Active Substance: ARIPIPRAZOLE
     Dosage: 1 DF, QD
     Route: 048
     Dates: start: 20200402, end: 20200405
  6. INVEGA [Suspect]
     Active Substance: PALIPERIDONE
     Dosage: 9 MG, QD
     Route: 048
     Dates: start: 20200325, end: 20200401
  7. INVEGA [Suspect]
     Active Substance: PALIPERIDONE
     Dosage: 6 MG, QD
     Route: 048
     Dates: start: 20200503
  8. BENZTROPINE MESYLATE. [Concomitant]
     Active Substance: BENZTROPINE MESYLATE
     Indication: AKATHISIA
     Dosage: 1 DF, QD (STRENGTH: 1 MG)
     Route: 048
     Dates: start: 20191004, end: 20200417
  9. BENZTROPINE MESYLATE. [Concomitant]
     Active Substance: BENZTROPINE MESYLATE
     Dosage: 1 DF, BID
     Route: 048
     Dates: start: 20200418
  10. INVEGA [Suspect]
     Active Substance: PALIPERIDONE
     Dosage: 1 DF, QD
     Route: 048
     Dates: start: 20200403, end: 20200417
  11. SEROQUEL [Concomitant]
     Active Substance: QUETIAPINE FUMARATE
     Dosage: 400 MG, QD
     Route: 048
     Dates: start: 20200411
  12. ARIPIPRAZOLE (DUAL CHAMBER) [Suspect]
     Active Substance: ARIPIPRAZOLE
     Indication: SCHIZOPHRENIA
     Dosage: 400 MG, UNK
     Route: 030
     Dates: start: 20200309, end: 20200309
  13. INVEGA [Suspect]
     Active Substance: PALIPERIDONE
     Indication: PRODUCT USED FOR UNKNOWN INDICATION
     Dosage: 12 MG, QD
     Route: 048
     Dates: start: 20191114, end: 20200308
  14. INVEGA [Suspect]
     Active Substance: PALIPERIDONE
     Dosage: 9 MG, QD
     Route: 048
     Dates: start: 20200502
  15. SEROQUEL [Concomitant]
     Active Substance: QUETIAPINE FUMARATE
     Dosage: 250 MG, QD
     Route: 048
     Dates: start: 20200406, end: 20200418
  16. ARIPIPRAZOLE. [Suspect]
     Active Substance: ARIPIPRAZOLE
     Dosage: 5 MG, QD (BEFORE SLEEP)
     Route: 048
     Dates: start: 20200228, end: 20200308
  17. SEROQUEL [Concomitant]
     Active Substance: QUETIAPINE FUMARATE
     Dosage: 50 MG, QD
     Route: 048
     Dates: start: 20200406, end: 20200408
  18. ARIPIPRAZOLE. [Suspect]
     Active Substance: ARIPIPRAZOLE
     Dosage: 10 MG, QD (BEFORE SLEEP)
     Route: 048
     Dates: start: 20200309, end: 20200324
  19. SEROQUEL [Concomitant]
     Active Substance: QUETIAPINE FUMARATE
     Indication: INSOMNIA
     Dosage: 1 DF, QD (STRENGTH: 25 MG)
     Route: 048
     Dates: start: 20191106, end: 20200401
  20. RIVOTRIL [Concomitant]
     Active Substance: CLONAZEPAM
     Dosage: 0.5 MG, BID
     Route: 048
     Dates: start: 20200406
  21. ARIPIPRAZOLE. [Suspect]
     Active Substance: ARIPIPRAZOLE
     Indication: SCHIZOPHRENIA
     Dosage: 10 MG, QD
     Route: 048
     Dates: start: 20200325, end: 20200401
  22. INVEGA [Suspect]
     Active Substance: PALIPERIDONE
     Dosage: 6 MG, QD
     Route: 048
     Dates: start: 20200402, end: 20200417
  23. SEROQUEL [Concomitant]
     Active Substance: QUETIAPINE FUMARATE
     Dosage: 50 MG, ONCE
     Route: 048
     Dates: start: 20200410, end: 20200410
  24. SEROQUEL [Concomitant]
     Active Substance: QUETIAPINE FUMARATE
     Dosage: 200 MG, QD
     Route: 048
     Dates: start: 20200411, end: 20200428
  25. SEROQUEL [Concomitant]
     Active Substance: QUETIAPINE FUMARATE
     Dosage: 50 MG, QD
     Route: 048
     Dates: start: 20200429
  26. BENZTROPINE MESYLATE. [Concomitant]
     Active Substance: BENZTROPINE MESYLATE
     Dosage: 0.5 MG, QD
     Route: 048
     Dates: start: 20200411, end: 20200417

REACTIONS (4)
  - Schizophrenia [Recovered/Resolved]
  - Headache [Recovered/Resolved]
  - Soliloquy [Recovered/Resolved]
  - Headache [Recovered/Resolved]

NARRATIVE: CASE EVENT DATE: 20200309
